FAERS Safety Report 20856111 (Version 1)
Quarter: 2022Q2

REPORT INFORMATION
  Report Type: Spontaneous
  Country: RU (occurrence: RU)
  Receive Date: 20220520
  Receipt Date: 20220520
  Transmission Date: 20220721
  Serious: Yes (Hospitalization, Other)
  Sender: FDA-Public Use
  Company Number: RU-GLAXOSMITHKLINE-RUCH2022EME017271

PATIENT

DRUGS (4)
  1. IBUPROFEN [Suspect]
     Active Substance: IBUPROFEN
     Indication: Chest pain
     Dosage: 600 MG, QD
  2. IBUPROFEN [Suspect]
     Active Substance: IBUPROFEN
     Indication: Myocardial infarction
     Dosage: 1200 MG, QD
  3. IBUPROFEN [Suspect]
     Active Substance: IBUPROFEN
     Dosage: 600 MG,QD
  4. AMIODARONE [Concomitant]
     Active Substance: AMIODARONE
     Indication: Atrial fibrillation
     Dosage: 200 MG, QD

REACTIONS (16)
  - Chest pain [Recovered/Resolved]
  - Pyrexia [Recovered/Resolved]
  - Haematuria [Unknown]
  - Blood loss anaemia [Unknown]
  - Condition aggravated [Unknown]
  - Therapeutic product effect incomplete [Unknown]
  - Nausea [Unknown]
  - Treatment noncompliance [Unknown]
  - Drug intolerance [Unknown]
  - Retching [Unknown]
  - Dizziness [Unknown]
  - Pleurisy [Unknown]
  - Dyspnoea [Unknown]
  - Dysuria [Unknown]
  - Proteinuria [Unknown]
  - Arthralgia [Recovered/Resolved]

NARRATIVE: CASE EVENT DATE: 20191201
